FAERS Safety Report 4545213-3 (Version None)
Quarter: 2004Q4

REPORT INFORMATION
  Report Type: 
  Country: None (occurrence: None)
  Receive Date: 20041222
  Receipt Date: 20040809
  Transmission Date: 20050328
  Serious: Yes (Hospitalization, Other)
  Sender: FDA-Public Use
  Company Number: USA040874931

PATIENT
  Age: 60 Year
  Sex: Male
  Weight: 94 kg

DRUGS (14)
  1. HUMALOG [Suspect]
     Indication: DIABETES MELLITUS
     Dosage: 105 U DAY
     Dates: start: 20000101
  2. HUMULIN N [Suspect]
     Indication: DIABETES MELLITUS
     Dates: start: 19900101, end: 20000101
  3. ASPIRIN W/DIPYRIDAMOLE [Concomitant]
  4. LABETALOL [Concomitant]
  5. DILTIAZEM [Concomitant]
  6. EZETIMIBE [Concomitant]
  7. SIMVASTATIN [Concomitant]
  8. EZETIMIBE [Concomitant]
  9. SIMVASTATIN [Concomitant]
  10. GABAPENTIN [Concomitant]
  11. ESCITALOPRAM [Concomitant]
  12. ZOLPIDEM TARTRATE [Concomitant]
  13. MECLIZINE HYDROCHLORIDE [Concomitant]
  14. PANTOPRAZOLE SODIUM [Concomitant]

REACTIONS (8)
  - BLOOD CHOLESTEROL INCREASED [None]
  - CEREBROVASCULAR ACCIDENT [None]
  - CORONARY ARTERY OCCLUSION [None]
  - FACIAL PAIN [None]
  - HEADACHE [None]
  - HYPERTENSION [None]
  - MACULAR DEGENERATION [None]
  - PAIN IN EXTREMITY [None]
